FAERS Safety Report 18630430 (Version 1)
Quarter: 2020Q4

REPORT INFORMATION
  Report Type: Spontaneous
  Country: DE (occurrence: DE)
  Receive Date: 20201218
  Receipt Date: 20201218
  Transmission Date: 20210114
  Serious: Yes (Life-Threatening)
  Sender: FDA-Public Use
  Company Number: DE-AUROBINDO-AUR-APL-2019-109248

PATIENT
  Age: 63 Year
  Sex: Female
  Weight: 64 kg

DRUGS (37)
  1. FOLINIC ACID [Suspect]
     Active Substance: LEUCOVORIN
     Dosage: 540 MILLIGRAM
     Route: 065
     Dates: start: 20190114
  2. IRINOTECAN [Suspect]
     Active Substance: IRINOTECAN
     Dosage: 315 MILLIGRAM
     Route: 065
     Dates: start: 20181210
  3. FLUOROURACIL. [Suspect]
     Active Substance: FLUOROURACIL
     Dosage: 3265 MILLIGRAM
     Route: 042
     Dates: start: 20190225
  4. FOLINIC ACID [Suspect]
     Active Substance: LEUCOVORIN
     Dosage: 545 MILLIGRAM
     Route: 065
     Dates: start: 20190513
  5. FOLINIC ACID [Suspect]
     Active Substance: LEUCOVORIN
     Dosage: 550 MILLIGRAM
     Route: 065
     Dates: start: 20190527
  6. FOLINIC ACID [Suspect]
     Active Substance: LEUCOVORIN
     Dosage: 555 MILLIGRAM
     Route: 065
     Dates: start: 20190729
  7. IRINOTECAN [Suspect]
     Active Substance: IRINOTECAN
     Dosage: 250 MILLIGRAM
     Route: 065
     Dates: start: 20191112
  8. VECTIBIX [Suspect]
     Active Substance: PANITUMUMAB
     Dosage: 365 MILLIGRAM
     Route: 042
     Dates: start: 20190513
  9. FOLINIC ACID [Suspect]
     Active Substance: LEUCOVORIN
     Dosage: 540 MILLIGRAM
     Route: 065
     Dates: start: 20190401
  10. FOLINIC ACID [Suspect]
     Active Substance: LEUCOVORIN
     Dosage: 550 MILLIGRAM
     Route: 065
     Dates: start: 20190826
  11. FOLINIC ACID [Suspect]
     Active Substance: LEUCOVORIN
     Dosage: 560 MILLIGRAM
     Route: 065
     Dates: start: 20191126
  12. FLUOROURACIL. [Suspect]
     Active Substance: FLUOROURACIL
     Dosage: 3300 MILLIGRAM
     Route: 042
     Dates: start: 20190527
  13. FLUOROURACIL. [Suspect]
     Active Substance: FLUOROURACIL
     Dosage: 3380 MILLIGRAM
     Route: 042
     Dates: start: 20191126
  14. VECTIBIX [Suspect]
     Active Substance: PANITUMUMAB
     Dosage: 355 MILLIGRAM
     Route: 042
     Dates: start: 20190114
  15. VECTIBIX [Suspect]
     Active Substance: PANITUMUMAB
     Dosage: 370 MILLIGRAM
     Route: 042
     Dates: start: 20190527
  16. METRONIDAZOL-RATIOPHARM [Concomitant]
     Indication: RASH
     Dosage: UNK UNK, AS NECESSARY
     Route: 062
     Dates: start: 20190125
  17. MCP-RATIOPHARM [Concomitant]
     Active Substance: METOCLOPRAMIDE HYDROCHLORIDE
     Indication: VOMITING
     Dosage: UNK MILLILITER, AS NECESSARY (10 MG/2 ML)
     Route: 048
     Dates: start: 20181212
  18. FOLINIC ACID [Suspect]
     Active Substance: LEUCOVORIN
     Dosage: 545 MILLIGRAM
     Route: 065
     Dates: start: 20190225
  19. FOLINIC ACID [Suspect]
     Active Substance: LEUCOVORIN
     Dosage: 520 MILLIGRAM
     Route: 065
     Dates: start: 20190910
  20. IRINOTECAN [Suspect]
     Active Substance: IRINOTECAN
     Dosage: 230 MILLIGRAM
     Route: 065
     Dates: start: 20190910
  21. FLUOROURACIL. [Suspect]
     Active Substance: FLUOROURACIL
     Dosage: 3285 MILLIGRAM
     Route: 042
     Dates: start: 20190513
  22. FLUOROURACIL. [Suspect]
     Active Substance: FLUOROURACIL
     Dosage: 3115 MILLIGRAM
     Route: 042
     Dates: start: 20190910
  23. FLUOROURACIL. [Suspect]
     Active Substance: FLUOROURACIL
     Indication: COLORECTAL CANCER METASTATIC
     Dosage: 700 MILLIGRAM
     Route: 040
     Dates: start: 20181210
  24. FLUOROURACIL. [Suspect]
     Active Substance: FLUOROURACIL
     Dosage: 3245 MILLIGRAM
     Route: 042
     Dates: start: 20190114
  25. FLUOROURACIL. [Suspect]
     Active Substance: FLUOROURACIL
     Dosage: 3340 MILLIGRAM
     Route: 042
     Dates: start: 20191112
  26. FOLINIC ACID [Suspect]
     Active Substance: LEUCOVORIN
     Indication: COLORECTAL CANCER METASTATIC
     Dosage: 700 MILLIGRAM
     Route: 065
     Dates: start: 20181210
  27. IRINOTECAN [Suspect]
     Active Substance: IRINOTECAN
     Dosage: 255 MILLIGRAM
     Route: 065
     Dates: start: 20191126
  28. FLUOROURACIL. [Suspect]
     Active Substance: FLUOROURACIL
     Dosage: 4200 MILLIGRAM
     Route: 042
     Dates: start: 20181224
  29. FLUOROURACIL. [Suspect]
     Active Substance: FLUOROURACIL
     Dosage: 3245 MILLIGRAM
     Route: 042
     Dates: start: 20190401
  30. VECTIBIX [Suspect]
     Active Substance: PANITUMUMAB
     Indication: COLORECTAL CANCER METASTATIC
     Dosage: 385 MILLIGRAM
     Route: 042
     Dates: start: 20181210
  31. VECTIBIX [Suspect]
     Active Substance: PANITUMUMAB
     Dosage: 360 MILLIGRAM
     Route: 042
     Dates: start: 20190225
  32. VECTIBIX [Suspect]
     Active Substance: PANITUMUMAB
     Dosage: 380 MILLIGRAM
     Route: 042
     Dates: start: 20190729
  33. FOLINIC ACID [Suspect]
     Active Substance: LEUCOVORIN
     Dosage: 355 MILLIGRAM
     Route: 065
     Dates: start: 20190211
  34. FOLINIC ACID [Suspect]
     Active Substance: LEUCOVORIN
     Dosage: 555 MILLIGRAM
     Route: 065
     Dates: start: 20191112
  35. TETRACYCLIN WOLFF [Concomitant]
     Indication: CHEMOTHERAPY
     Dosage: 250 MILLIGRAM, ONCE A DAY
     Route: 048
     Dates: start: 20181207
  36. IRINOTECAN [Suspect]
     Active Substance: IRINOTECAN
     Dosage: 245 MILLIGRAM
     Route: 065
     Dates: start: 20190114
  37. FLUOROURACIL. [Suspect]
     Active Substance: FLUOROURACIL
     Dosage: 3340 MILLIGRAM
     Route: 042
     Dates: start: 20190729

REACTIONS (1)
  - Rash [Recovered/Resolved]

NARRATIVE: CASE EVENT DATE: 20190909
